FAERS Safety Report 6421007-9 (Version None)
Quarter: 2009Q4

REPORT INFORMATION
  Report Type: 
  Country: None (occurrence: None)
  Receive Date: 20091030
  Receipt Date: 20091021
  Transmission Date: 20100525
  Serious: Yes (Hospitalization, Other)
  Sender: FDA-Public Use
  Company Number: US-BAYER-200928610NA

PATIENT
  Sex: Female

DRUGS (1)
  1. YAZ [Suspect]
     Indication: DRUG USE FOR UNKNOWN INDICATION
     Dates: start: 20071123, end: 20081119

REACTIONS (4)
  - DEEP VEIN THROMBOSIS [None]
  - DYSPNOEA [None]
  - PAIN IN EXTREMITY [None]
  - PULMONARY EMBOLISM [None]
